FAERS Safety Report 6919920-9 (Version None)
Quarter: 2010Q3

REPORT INFORMATION
  Report Type: 
  Country: None (occurrence: None)
  Receive Date: 20100811
  Receipt Date: 20100729
  Transmission Date: 20110219
  Serious: Yes (Other)
  Sender: FDA-Public Use
  Company Number: PHHY2010JP50217

PATIENT
  Age: 77 Year
  Sex: Female
  Weight: 36 kg

DRUGS (10)
  1. ICL670A ICL+DISTAB [Suspect]
     Indication: MYELODYSPLASTIC SYNDROME
     Dosage: 625 MG DAILY
     Route: 048
     Dates: start: 20090916
  2. DESFERAL [Concomitant]
     Indication: IRON OVERLOAD
     Dosage: 1000 MG, UNK
     Route: 030
     Dates: start: 20071227, end: 20090902
  3. PREDNISOLONE [Concomitant]
     Dosage: 8 MG, UNK
     Route: 048
  4. PREDNISOLONE [Concomitant]
     Dosage: 7 MG, UNK
     Route: 048
  5. PREDNISOLONE [Concomitant]
     Dosage: 6 MG, UNK
     Route: 048
     Dates: end: 20100421
  6. GASTER D [Concomitant]
     Indication: GASTRITIS PROPHYLAXIS
     Dosage: 40 MG, UNK
     Route: 048
  7. NOVOLIN R [Concomitant]
     Dosage: 10 DF, UNK
     Dates: start: 20090826
  8. NOVOLIN R [Concomitant]
     Dosage: 14 DF, UNK
  9. NOVOLIN R [Concomitant]
     Dosage: 12 DF, UNK
     Dates: end: 20091124
  10. RED BLOOD CELLS [Concomitant]
     Dosage: 4 UNITS EVERY THREE WEEKS

REACTIONS (4)
  - BACK PAIN [None]
  - BLOOD ALKALINE PHOSPHATASE INCREASED [None]
  - BLOOD CREATININE INCREASED [None]
  - FRACTURE [None]
